FAERS Safety Report 6463129-2 (Version None)
Quarter: 2009Q4

REPORT INFORMATION
  Report Type: 
  Country: None (occurrence: None)
  Receive Date: 20091124
  Receipt Date: 20091116
  Transmission Date: 20100525
  Serious: Yes (Death, Hospitalization)
  Sender: FDA-Public Use
  Company Number: 2009AC000093

PATIENT
  Age: 64 Year
  Sex: Female
  Weight: 70.3075 kg

DRUGS (45)
  1. DIGOXIN [Suspect]
     Dosage: 0.25 MG;QD;PO
     Route: 048
     Dates: start: 20050101, end: 20090102
  2. DIGOXIN [Suspect]
     Dosage: 0.125 MG;QD;PO
     Route: 048
     Dates: start: 20060618
  3. DIGOXIN [Suspect]
     Dosage: 0.25 MG;QD;PO
     Route: 048
     Dates: start: 19980401
  4. MONOPRIL [Concomitant]
  5. HYDROXYUREA [Concomitant]
  6. COUMADIN [Concomitant]
  7. FOSINOPRIL SODIUM [Concomitant]
  8. SPORANOX [Concomitant]
  9. FUROSEMIDE [Concomitant]
  10. GLYBURIDE [Concomitant]
  11. ASCENSIA [Concomitant]
  12. ISOSORBIDE [Concomitant]
  13. TYLENOL (CAPLET) [Concomitant]
  14. SPIRONOLACTONE [Concomitant]
  15. COREG [Concomitant]
  16. FOSAMAX [Concomitant]
  17. NITROGLYCERIN [Concomitant]
  18. PRINIVIL [Concomitant]
  19. SIMVASTATIN [Concomitant]
  20. CARVEDILOL [Concomitant]
  21. NEXIUM [Concomitant]
  22. FLONASE [Concomitant]
  23. CALCIUM [Concomitant]
  24. NITROGLYCERIN [Concomitant]
  25. XANAX [Concomitant]
  26. SIMETHICONE [Concomitant]
  27. TYLENOL [Concomitant]
  28. PHENERGAN HCL [Concomitant]
  29. IBUPROFEN [Concomitant]
  30. CHLORPHENIRAMINE MALEATE [Concomitant]
  31. ALPRAZOLAM [Concomitant]
  32. LOPERAMIDE [Concomitant]
  33. FLUTICASONE PROPIONATE [Concomitant]
  34. NOVOLIN [Concomitant]
  35. PREMARIN [Concomitant]
  36. ITRACONAZOLE [Concomitant]
  37. HYDOX-UREA [Concomitant]
  38. CALCIUM [Concomitant]
  39. ZITHROMAX [Concomitant]
  40. LOTENSIN [Concomitant]
  41. CEPHALEXIN [Concomitant]
  42. WARFARIN SODIUM [Concomitant]
  43. MONOPRIL [Concomitant]
  44. NEXIUM [Concomitant]
  45. LOSINOPRIL [Concomitant]

REACTIONS (23)
  - ASTHENIA [None]
  - ATAXIA [None]
  - ATRIAL FIBRILLATION [None]
  - BRADYCARDIA [None]
  - CONFUSIONAL STATE [None]
  - CORONARY ARTERY DISEASE [None]
  - DISORIENTATION [None]
  - ECONOMIC PROBLEM [None]
  - ELECTROCARDIOGRAM ST-T CHANGE [None]
  - FLATULENCE [None]
  - FLUID OVERLOAD [None]
  - GASTROENTERITIS [None]
  - HEART VALVE INCOMPETENCE [None]
  - HIATUS HERNIA [None]
  - HYPERTENSION [None]
  - HYPOGLYCAEMIA [None]
  - HYPOTENSION [None]
  - MITRAL VALVE INCOMPETENCE [None]
  - MITRAL VALVE STENOSIS [None]
  - MULTIPLE INJURIES [None]
  - PULMONARY VALVE INCOMPETENCE [None]
  - ROAD TRAFFIC ACCIDENT [None]
  - THERAPEUTIC AGENT TOXICITY [None]
